FAERS Safety Report 20097950 (Version 2)
Quarter: 2021Q4

REPORT INFORMATION
  Report Type: Report from Study
  Country: CN (occurrence: CN)
  Receive Date: 20211122
  Receipt Date: 20211126
  Transmission Date: 20220303
  Serious: Yes (Life-Threatening)
  Sender: FDA-Public Use
  Company Number: CN-002147023-NVSC2021CN259066

PATIENT

DRUGS (1)
  1. RUXOLITINIB [Suspect]
     Active Substance: RUXOLITINIB
     Indication: Myelofibrosis
     Dosage: UNK
     Route: 065

REACTIONS (22)
  - Abdominal discomfort [Unknown]
  - Bone pain [Unknown]
  - Burning sensation [Unknown]
  - Depression [Unknown]
  - Insomnia [Unknown]
  - Drug ineffective [Unknown]
  - Fatigue [Unknown]
  - Pyrexia [Unknown]
  - Early satiety [Unknown]
  - Quality of life decreased [Unknown]
  - Decreased activity [Unknown]
  - Pruritus [Unknown]
  - Dizziness [Unknown]
  - Product dose omission issue [Unknown]
  - Myalgia [Unknown]
  - Night sweats [Unknown]
  - Disturbance in attention [Unknown]
  - Erythema [Unknown]
  - Pain [Unknown]
  - Weight decreased [Unknown]
  - Vertigo [Unknown]
  - Asthenia [Unknown]
